FAERS Safety Report 8480955-9 (Version None)
Quarter: 2012Q2

REPORT INFORMATION
  Report Type: 
  Country: None (occurrence: None)
  Receive Date: 20120622
  Receipt Date: 20120614
  Transmission Date: 20120825
  Serious: Yes (Hospitalization, Other)
  Sender: FDA-Public Use
  Company Number: WAES 1102USA00491

PATIENT
  Age: 68 Year
  Sex: Male

DRUGS (8)
  1. ACEMETACIN [Concomitant]
  2. ASPIRIN [Concomitant]
  3. LISINOPRIL [Concomitant]
  4. PLACEBO [Suspect]
     Indication: ACUTE CORONARY SYNDROME
     Route: 048
     Dates: start: 20080116
  5. LATANOPROST [Concomitant]
  6. OMEPRAZOLE [Concomitant]
  7. ZOCOR [Suspect]
     Indication: ACUTE CORONARY SYNDROME
     Dosage: 40 MG/DAILY
     Route: 048
     Dates: start: 20080116
  8. TAB PLACEBO (UNSPECFIED) [Suspect]
     Indication: ACUTE CORONARY SYNDROME
     Route: 048
     Dates: start: 20080116

REACTIONS (2)
  - PROSTATE CANCER [None]
  - HEPATIC NEOPLASM MALIGNANT [None]
